FAERS Safety Report 10853708 (Version 1)
Quarter: 2015Q1

REPORT INFORMATION
  Report Type: Spontaneous
  Country: US (occurrence: None)
  Receive Date: 20150218
  Receipt Date: 20150218
  Transmission Date: 20150721
  Serious: No
  Sender: FDA-Public Use
  Company Number: None

PATIENT
  Age: 10 Year
  Sex: Male

DRUGS (2)
  1. GUAIFENESIN. [Suspect]
     Active Substance: GUAIFENESIN
     Indication: ATTENTION DEFICIT/HYPERACTIVITY DISORDER
     Dosage: 1MG PRESCRIPTION ..WRITTEN FOR #10, 3 TABLETS BY MOUTH AS DIRECTED BY MOUTH
     Route: 048
  2. GUAIFENESIN. [Suspect]
     Active Substance: GUAIFENESIN
     Indication: ANXIETY
     Dosage: 1MG PRESCRIPTION ..WRITTEN FOR #10, 3 TABLETS BY MOUTH AS DIRECTED BY MOUTH
     Route: 048

REACTIONS (4)
  - Anxiety [None]
  - Headache [None]
  - Obsessive-compulsive disorder [None]
  - Agitation [None]

NARRATIVE: CASE EVENT DATE: 20150203
